FAERS Safety Report 20970194 (Version 1)
Quarter: 2022Q2

REPORT INFORMATION
  Report Type: Spontaneous
  Country: US (occurrence: US)
  Receive Date: 20220616
  Receipt Date: 20220616
  Transmission Date: 20220721
  Serious: No
  Sender: FDA-Public Use
  Company Number: US-SA-SAC20220606001676

PATIENT
  Sex: Male

DRUGS (1)
  1. DUPIXENT [Suspect]
     Active Substance: DUPILUMAB
     Indication: Asthma
     Dosage: 300 MG, QOW
     Route: 058
     Dates: start: 20220420

REACTIONS (5)
  - Lacrimation increased [Unknown]
  - Injection site swelling [Unknown]
  - Drug ineffective [Unknown]
  - Incorrect dose administered [Unknown]
  - Injection site reaction [Unknown]

NARRATIVE: CASE EVENT DATE: 20220101
